FAERS Safety Report 24412233 (Version 2)
Quarter: 2024Q4

REPORT INFORMATION
  Report Type: Spontaneous
  Country: US (occurrence: US)
  Receive Date: 20241008
  Receipt Date: 20241014
  Transmission Date: 20250114
  Serious: Yes (Life-Threatening, Hospitalization, Other)
  Sender: CIPLA
  Company Number: US-CIPLA LTD.-2024US10966

PATIENT

DRUGS (1)
  1. METOPROLOL [Suspect]
     Active Substance: METOPROLOL
     Dosage: 200 MILLIGRAM (40 TABLETS)
     Route: 048

REACTIONS (3)
  - Intentional overdose [Recovering/Resolving]
  - Shock [Recovering/Resolving]
  - Hypotension [Recovering/Resolving]
